FAERS Safety Report 8590945-3 (Version None)
Quarter: 2012Q3

REPORT INFORMATION
  Report Type: 
  Country: None (occurrence: None)
  Receive Date: 20120813
  Receipt Date: 20120801
  Transmission Date: 20120928
  Serious: Yes (Hospitalization, Other)
  Sender: FDA-Public Use
  Company Number: US-009507513-1203USA02842

PATIENT

DRUGS (5)
  1. FOSAMAX [Suspect]
     Dosage: 70 MG, UNK
     Route: 048
     Dates: start: 20080301, end: 20100301
  2. FOSAMAX [Suspect]
     Dosage: 70 MG, UNK
     Route: 048
     Dates: start: 20050601, end: 20061101
  3. VITAMIN D [Concomitant]
     Indication: OSTEOPOROSIS
     Dosage: UNK
     Route: 048
     Dates: start: 20080201
  4. FOSAMAX [Suspect]
     Indication: OSTEOPOROSIS
  5. FOSAMAX PLUS D [Suspect]
     Indication: OSTEOPOROSIS
     Dosage: 70 MG, UNK
     Route: 048
     Dates: start: 20061201, end: 20080201

REACTIONS (7)
  - ARTHRALGIA [None]
  - PAIN IN EXTREMITY [None]
  - HORMONE LEVEL ABNORMAL [None]
  - FEMUR FRACTURE [None]
  - VITAMIN D DEFICIENCY [None]
  - OSTEOPENIA [None]
  - LOW TURNOVER OSTEOPATHY [None]
